FAERS Safety Report 10496613 (Version 3)
Quarter: 2014Q4

REPORT INFORMATION
  Report Type: Spontaneous
  Country: FR (occurrence: FR)
  Receive Date: 20141005
  Receipt Date: 20141204
  Transmission Date: 20150528
  Serious: Yes (Life-Threatening, Hospitalization, Other)
  Sender: FDA-Public Use
  Company Number: FR-BRISTOL-MYERS SQUIBB COMPANY-21442272

PATIENT
  Age: 72 Year
  Sex: Male
  Weight: 138 kg

DRUGS (13)
  1. KARDEGIC [Suspect]
     Active Substance: ASPIRIN LYSINE
  2. CORDARONE [Suspect]
     Active Substance: AMIODARONE HYDROCHLORIDE
     Dates: start: 20140708
  3. CARDENSIEL [Concomitant]
     Active Substance: BISOPROLOL FUMARATE
  4. INEXIUM [Concomitant]
     Active Substance: ESOMEPRAZOLE
  5. ELIQUIS [Suspect]
     Active Substance: APIXABAN
     Indication: CEREBROVASCULAR ACCIDENT PROPHYLAXIS
     Dosage: LAST DOSE ON: 19AUG14.
     Route: 048
     Dates: start: 20140708
  6. INSPRA [Concomitant]
     Active Substance: EPLERENONE
  7. RAMIPRIL. [Concomitant]
     Active Substance: RAMIPRIL
  8. FUROSEMIDE. [Concomitant]
     Active Substance: FUROSEMIDE
  9. DISCOTRINE [Concomitant]
     Active Substance: NITROGLYCERIN
  10. LEVOTHYROX [Concomitant]
     Active Substance: LEVOTHYROXINE
  11. STILNOX [Concomitant]
     Active Substance: ZOLPIDEM TARTRATE
  12. DIFFU-K [Concomitant]
     Active Substance: POTASSIUM CHLORIDE
  13. CRESTOR [Concomitant]
     Active Substance: ROSUVASTATIN CALCIUM

REACTIONS (3)
  - Shock haemorrhagic [Recovered/Resolved]
  - Post procedural complication [Recovered/Resolved]
  - Haematoma [Recovered/Resolved]

NARRATIVE: CASE EVENT DATE: 20140819
